FAERS Safety Report 10276316 (Version 1)
Quarter: 2014Q3

REPORT INFORMATION
  Report Type: Spontaneous
  Country: GB (occurrence: GB)
  Receive Date: 20140703
  Receipt Date: 20140703
  Transmission Date: 20150326
  Serious: Yes (Other)
  Sender: FDA-Public Use
  Company Number: PHHY2014GB080738

PATIENT
  Sex: Female

DRUGS (17)
  1. RITUXIMAB [Interacting]
     Active Substance: RITUXIMAB
     Indication: DIFFUSE LARGE B-CELL LYMPHOMA
     Dates: start: 20140620
  2. OMEPRAZOLE. [Concomitant]
     Active Substance: OMEPRAZOLE
  3. GABAPENTIN. [Concomitant]
     Active Substance: GABAPENTIN
  4. PARACETAMOL [Concomitant]
     Active Substance: ACETAMINOPHEN
  5. TACROLIMUS. [Interacting]
     Active Substance: TACROLIMUS
     Dosage: 1 MG, BID
  6. VINCRISTINE [Interacting]
     Active Substance: VINCRISTINE
     Indication: DIFFUSE LARGE B-CELL LYMPHOMA
     Dates: start: 20140620
  7. ONDANSETRON [Concomitant]
     Active Substance: ONDANSETRON
  8. TACROLIMUS. [Suspect]
     Active Substance: TACROLIMUS
     Indication: RENAL TRANSPLANT
     Dosage: 2 MG, BID
  9. PREDNISOLONE. [Interacting]
     Active Substance: PREDNISOLONE
     Dosage: 5 MG, UNK
  10. CYCLOPHOSPHAMIDE. [Interacting]
     Active Substance: CYCLOPHOSPHAMIDE
     Indication: DIFFUSE LARGE B-CELL LYMPHOMA
     Dates: start: 20140620
  11. CYCLIZINE [Concomitant]
     Active Substance: CYCLIZINE
  12. DALTEPARIN [Concomitant]
     Active Substance: DALTEPARIN
     Indication: PROPHYLAXIS
  13. OXYCONTIN [Concomitant]
     Active Substance: OXYCODONE HYDROCHLORIDE
  14. TACROLIMUS. [Interacting]
     Active Substance: TACROLIMUS
     Dosage: 1.5 MG, BID
     Dates: start: 20040118
  15. AZATHIOPRINE. [Interacting]
     Active Substance: AZATHIOPRINE
     Dates: end: 20140620
  16. PREDNISOLONE. [Interacting]
     Active Substance: PREDNISOLONE
     Indication: PREMEDICATION
     Dosage: 80 MG, UNK
     Dates: start: 20140616
  17. ALFACALCIDOL [Concomitant]
     Active Substance: ALFACALCIDOL

REACTIONS (2)
  - Immunosuppressant drug level increased [Unknown]
  - Drug interaction [Unknown]
